FAERS Safety Report 7808774-4 (Version None)
Quarter: 2011Q4

REPORT INFORMATION
  Report Type: 
  Country: None (occurrence: None)
  Receive Date: 20111012
  Receipt Date: 20110930
  Transmission Date: 20120403
  Serious: Yes (Other)
  Sender: FDA-Public Use
  Company Number: PHHY2011BR87319

PATIENT
  Sex: Male
  Weight: 82 kg

DRUGS (11)
  1. ENABLEX [Suspect]
     Indication: HYPERTONIC BLADDER
     Dosage: 1 DF, (1 TABLET A DAY
     Route: 048
     Dates: start: 20110917, end: 20110922
  2. TYLENOL-500 [Concomitant]
     Indication: BLADDER PAIN
  3. TAMSULOSIN HCL [Concomitant]
     Indication: MUSCLE RELAXANT THERAPY
     Dosage: 0.4 MG, QD
     Route: 048
  4. LORAX [Concomitant]
     Indication: SLEEP DISORDER
     Dosage: 2 MG, QD
  5. ETILEFRINE HYDROCHLORIDE [Concomitant]
     Indication: DEPRESSION
     Dosage: 0.25 MG,1 OR 2 CAPSULES A DAY
  6. PAROXETINE HCL [Concomitant]
     Indication: DEPRESSION
     Dosage: 10 MG, QD
     Route: 048
  7. TYLENOL-500 [Concomitant]
     Indication: URETHRAL PAIN
     Dosage: 750 MG,1 TO 3 CAPSULES A DAY
     Route: 048
  8. ATACAND [Concomitant]
     Indication: HYPERTENSION
     Dosage: 16 MG, QD
     Route: 048
  9. AVODART [Concomitant]
     Indication: PROSTATOMEGALY
     Dosage: 0.5 MG, QD
  10. OMEPRAZOLE [Concomitant]
     Indication: ABDOMINAL DISCOMFORT
     Dosage: 20 MG, QD
  11. HYGROTON [Concomitant]
     Indication: HYPERTENSION
     Dosage: 8 MG, QD
     Route: 048

REACTIONS (6)
  - DEPRESSION [None]
  - RETCHING [None]
  - DYSPEPSIA [None]
  - HYPERCHLORHYDRIA [None]
  - TACHYCARDIA [None]
  - DECREASED APPETITE [None]
